FAERS Safety Report 5386354-0 (Version None)
Quarter: 2007Q3

REPORT INFORMATION
  Report Type: 
  Country: None (occurrence: None)
  Receive Date: 20070713
  Receipt Date: 20070710
  Transmission Date: 20080115
  Serious: Yes (Death)
  Sender: FDA-Public Use
  Company Number: MX-BRISTOL-MYERS SQUIBB COMPANY-13840582

PATIENT
  Age: 22 Day
  Sex: Female

DRUGS (4)
  1. MAXIPIME [Suspect]
     Indication: SEPSIS NEONATAL
     Route: 042
     Dates: start: 20070702, end: 20070709
  2. PLATELETS [Concomitant]
  3. PLASMA [Concomitant]
  4. VITAMIN K [Concomitant]

REACTIONS (2)
  - CARDIAC ARREST [None]
  - DRUG INEFFECTIVE [None]
